FAERS Safety Report 16819327 (Version 1)
Quarter: 2019Q3

REPORT INFORMATION
  Report Type: Spontaneous
  Country: US (occurrence: US)
  Receive Date: 20190917
  Receipt Date: 20190917
  Transmission Date: 20191005
  Serious: Yes (Hospitalization)
  Sender: FDA-Public Use
  Company Number: US-TEVA-2019-US-1108567

PATIENT
  Age: 58 Year
  Sex: Male

DRUGS (24)
  1. PIPERACILLIN /TAZOBACTAM [Suspect]
     Active Substance: PIPERACILLIN SODIUM\TAZOBACTAM SODIUM
     Indication: BACTERAEMIA
     Dosage: SINGLE DOSE
     Route: 042
  2. VASOPRESSIN. [Suspect]
     Active Substance: VASOPRESSIN
     Indication: HAEMODYNAMIC INSTABILITY
     Dosage: 0.02-0.04 UNITS/MINUTE ON DAYS 2-6
     Route: 065
  3. ASCORBIC ACID. [Suspect]
     Active Substance: ASCORBIC ACID
     Indication: SALVAGE THERAPY
     Dosage: ON DAYS 2-5
     Route: 042
  4. CIPROFLOXACIN. [Concomitant]
     Active Substance: CIPROFLOXACIN
     Indication: PROPHYLAXIS
     Dosage: SINGLE DOSE
     Route: 042
  5. LINEZOLID. [Suspect]
     Active Substance: LINEZOLID
     Indication: BACTERAEMIA
     Route: 042
  6. HYDROCORTISONE. [Suspect]
     Active Substance: HYDROCORTISONE
     Indication: SALVAGE THERAPY
     Dosage: ON DAYS 2-6
     Route: 042
  7. PIPERACILLIN /TAZOBACTAM [Suspect]
     Active Substance: PIPERACILLIN SODIUM\TAZOBACTAM SODIUM
     Route: 042
  8. VANCOMYCIN [Suspect]
     Active Substance: VANCOMYCIN
     Route: 042
  9. PHENYLEPHRINE [Suspect]
     Active Substance: PHENYLEPHRINE HYDROCHLORIDE
     Indication: HAEMODYNAMIC INSTABILITY
     Dosage: DRIP TITRATED TO GOAL MEAN ARTERIAL PRESSURE ON DAYS 2-3
     Route: 065
  10. CIPROFLOXACIN. [Concomitant]
     Active Substance: CIPROFLOXACIN
     Dosage: 800 MILLIGRAM DAILY; ON HOSPITAL DAY 2
     Route: 042
  11. INSULIN [Concomitant]
     Active Substance: INSULIN NOS
     Route: 065
  12. GLUCOSE [Concomitant]
     Active Substance: DEXTROSE
     Route: 065
  13. NOREPINEPHRINE. [Suspect]
     Active Substance: NOREPINEPHRINE
     Indication: HAEMODYNAMIC INSTABILITY
     Dosage: 2-200MICROGRAM/MIN
     Route: 065
  14. VANCOMYCIN [Suspect]
     Active Substance: VANCOMYCIN
     Indication: BACTERAEMIA
     Dosage: SINGLE DOSE
     Route: 042
  15. MICAFUNGIN. [Concomitant]
     Active Substance: MICAFUNGIN SODIUM
     Indication: ANTIFUNGAL PROPHYLAXIS
     Route: 065
  16. GENTAMICIN. [Suspect]
     Active Substance: GENTAMICIN
     Indication: BACTERAEMIA
     Dosage: SINGLE DOSE, FORM OF ADMIN UNKNOWN
     Route: 042
  17. CLINDAMYCIN. [Suspect]
     Active Substance: CLINDAMYCIN
     Indication: BACTERAEMIA
     Route: 042
  18. IMMUNOGLOBULIN IV [Suspect]
     Active Substance: HUMAN IMMUNOGLOBULIN G
     Indication: SALVAGE THERAPY
     Dosage: ON DAY 5
     Route: 042
  19. DOXYCYCLINE. [Concomitant]
     Active Substance: DOXYCYCLINE
     Indication: PROPHYLAXIS
     Dosage: ONE TIME DOSE
     Route: 042
  20. CEFTRIAXONE. [Suspect]
     Active Substance: CEFTRIAXONE
     Indication: BACTERAEMIA
     Dosage: SINGLE DOSE
     Route: 042
  21. MEROPENEM. [Suspect]
     Active Substance: MEROPENEM
     Indication: BACTERAEMIA
     Route: 065
  22. THIAMINE. [Suspect]
     Active Substance: THIAMINE
     Indication: SALVAGE THERAPY
     Dosage: 400 MILLIGRAM DAILY; ON DAYS 3-6
     Route: 042
  23. DOBUTAMINE [Suspect]
     Active Substance: DOBUTAMINE HYDROCHLORIDE
     Indication: HAEMODYNAMIC INSTABILITY
     Dosage: 5-20 MICROGRAM/KG/MIN ON DAYS 3-6
     Route: 065
  24. ACYCLOVIR. [Concomitant]
     Active Substance: ACYCLOVIR
     Indication: ANTIVIRAL PROPHYLAXIS
     Route: 065

REACTIONS (1)
  - Drug ineffective [Unknown]
